FAERS Safety Report 4549132-8 (Version None)
Quarter: 2004Q4

REPORT INFORMATION
  Report Type: 
  Country: None (occurrence: None)
  Receive Date: 20041227
  Receipt Date: 20041111
  Transmission Date: 20050328
  Serious: No
  Sender: FDA-Public Use
  Company Number: 04P-163-0270903-00

PATIENT
  Age: 50 Year
  Sex: Male
  Weight: 73.4827 kg

DRUGS (7)
  1. HUMIRA [Suspect]
     Indication: PSORIATIC ARTHROPATHY
     Dosage: 40 MG, 1 IN 2 WK, SUBCUTANEOUS
     Route: 058
     Dates: start: 20030101
  2. CLONIDINE [Concomitant]
  3. ZETIA [Concomitant]
  4. LOSARTAN POTASSIUM [Concomitant]
  5. ATORVASTATIN [Concomitant]
  6. FENOFIBRATE [Concomitant]
  7. INFLIXIMAB [Concomitant]

REACTIONS (8)
  - COLD SWEAT [None]
  - HYPERHIDROSIS [None]
  - INJECTION SITE BURNING [None]
  - INJECTION SITE HAEMORRHAGE [None]
  - INJECTION SITE NODULE [None]
  - NAUSEA [None]
  - PHARYNGOLARYNGEAL PAIN [None]
  - SINUSITIS [None]
